FAERS Safety Report 18961832 (Version 1)
Quarter: 2021Q1

REPORT INFORMATION
  Report Type: Spontaneous
  Country: US (occurrence: US)
  Receive Date: 20210303
  Receipt Date: 20210303
  Transmission Date: 20210420
  Serious: No
  Sender: FDA-Public Use
  Company Number: US-SA-2021SA070633

PATIENT
  Age: 20 Year
  Sex: Female

DRUGS (11)
  1. MEDROXYPROGESTERONE ACETATE. [Concomitant]
     Active Substance: MEDROXYPROGESTERONE ACETATE
  2. PREDNISONE. [Concomitant]
     Active Substance: PREDNISONE
  3. CLONAZEPAM. [Concomitant]
     Active Substance: CLONAZEPAM
  4. DUPIXENT [Suspect]
     Active Substance: DUPILUMAB
     Indication: DERMATITIS ATOPIC
     Dosage: 300 MG, QOW
     Route: 058
     Dates: start: 20180126
  5. BENZTROPINE [BENZATROPINE] [Concomitant]
     Active Substance: BENZTROPINE
  6. GABAPENTIN. [Concomitant]
     Active Substance: GABAPENTIN
  7. HALOPERIDOL. [Concomitant]
     Active Substance: HALOPERIDOL
  8. HYDROXYZINE PAM [Concomitant]
     Active Substance: HYDROXYZINE PAMOATE
  9. EUCRISA [Concomitant]
     Active Substance: CRISABOROLE
  10. ESZOPICLONE. [Concomitant]
     Active Substance: ESZOPICLONE
  11. DOK [Concomitant]
     Active Substance: DOCUSATE SODIUM

REACTIONS (2)
  - Dermatitis atopic [Not Recovered/Not Resolved]
  - Rash [Not Recovered/Not Resolved]

NARRATIVE: CASE EVENT DATE: 20210224
